FAERS Safety Report 11576978 (Version 1)
Quarter: 2015Q3

REPORT INFORMATION
  Report Type: Spontaneous
  Country: DK (occurrence: NO)
  Receive Date: 20150930
  Receipt Date: 20150930
  Transmission Date: 20151125
  Serious: Yes (Disabling, Other)
  Sender: FDA-Public Use
  Company Number: NO-FRI-1000079838

PATIENT
  Age: 25 Year
  Sex: Female
  Weight: 64 kg

DRUGS (2)
  1. ESCITALOPRAM [Suspect]
     Active Substance: ESCITALOPRAM OXALATE
     Indication: DEPRESSION
     Dosage: 10 MG
     Route: 065
     Dates: start: 20130315, end: 20150901
  2. ESCITALOPRAM [Suspect]
     Active Substance: ESCITALOPRAM OXALATE
     Dosage: 5 MG
     Route: 065

REACTIONS (10)
  - Dizziness [Unknown]
  - Vomiting [Unknown]
  - Nausea [Unknown]
  - Drug withdrawal syndrome [Unknown]
  - Hypoacusis [Unknown]
  - Paraesthesia [Unknown]
  - Headache [Unknown]
  - Visual impairment [Unknown]
  - Tinnitus [Unknown]
  - Panic attack [Unknown]

NARRATIVE: CASE EVENT DATE: 20150901
